FAERS Safety Report 4673117-4 (Version None)
Quarter: 2005Q2

REPORT INFORMATION
  Report Type: 
  Country: None (occurrence: None)
  Receive Date: 20050525
  Receipt Date: 20050513
  Transmission Date: 20051028
  Serious: Yes (Other)
  Sender: FDA-Public Use
  Company Number: US-JNJFOC-20050504096

PATIENT
  Age: 64 Year
  Sex: Female
  Weight: 90.72 kg

DRUGS (2)
  1. FENTANYL [Suspect]
     Route: 062
     Dates: start: 20050201
  2. HYDROCODONE BITARTRATE [Concomitant]
     Route: 049
     Dates: start: 20030101

REACTIONS (3)
  - CONVULSION [None]
  - DRUG WITHDRAWAL SYNDROME [None]
  - MUSCLE SPASTICITY [None]
